FAERS Safety Report 9506107 (Version 1)
Quarter: 2013Q1

REPORT INFORMATION
  Report Type: Spontaneous
  Country: US (occurrence: None)
  Receive Date: 20130301
  Receipt Date: 20130301
  Transmission Date: 20140127
  Serious: Yes (Life-Threatening, Hospitalization, Other)
  Sender: FDA-Public Use
  Company Number: RB-39258-2012

PATIENT
  Age: 32 Year
  Sex: Female
  Weight: 77.11 kg

DRUGS (14)
  1. SUBOXONE [Suspect]
     Indication: DRUG DEPENDENCE
     Route: 060
     Dates: start: 20120410, end: 20120410
  2. ADVAIR [Concomitant]
  3. ALBUTEROL SULFATE [Concomitant]
  4. AZATHIOPRINE [Concomitant]
  5. CETIRIZINE [Concomitant]
  6. DEPAKOTE [Concomitant]
  7. FLUTICASONE [Concomitant]
  8. HYDROCHLOROTHIAZIDE [Concomitant]
  9. LIBRIUM [Concomitant]
  10. OSCAL [Concomitant]
  11. NAPROSYN [Concomitant]
  12. PREDNISONE [Concomitant]
  13. RANITIDINE [Concomitant]
  14. VENTOLIN HFA [Concomitant]

REACTIONS (2)
  - Anaphylactic reaction [None]
  - Wrong technique in drug usage process [None]
